FAERS Safety Report 9482418 (Version 1)
Quarter: 2013Q3

REPORT INFORMATION
  Report Type: Spontaneous
  Country: US (occurrence: US)
  Receive Date: 20130828
  Receipt Date: 20130828
  Transmission Date: 20140515
  Serious: Yes (Death, Other)
  Sender: FDA-Public Use
  Company Number: US-PFIZER INC-2013245166

PATIENT
  Age: 66 Year
  Sex: Male

DRUGS (1)
  1. REVATIO [Suspect]
     Indication: CARDIOMYOPATHY
     Dosage: 20 MG, 2 TABS 3X/DAY (TID)
     Dates: start: 20120821

REACTIONS (2)
  - Cardiac failure [Fatal]
  - Off label use [Unknown]
